FAERS Safety Report 4541131-5 (Version None)
Quarter: 2004Q4

REPORT INFORMATION
  Report Type: 
  Country: None (occurrence: None)
  Receive Date: 20041228
  Receipt Date: 20041215
  Transmission Date: 20050328
  Serious: Yes (Hospitalization)
  Sender: FDA-Public Use
  Company Number: A03200403455

PATIENT
  Age: 55 Year
  Sex: Male
  Weight: 73.4827 kg

DRUGS (6)
  1. ELOXATIN [Suspect]
     Indication: METASTASES TO LYMPH NODES
     Dosage: 163 MG OTHER INTRAVENOUS NOS
     Route: 042
     Dates: start: 20041012, end: 20041012
  2. ELOXATIN [Suspect]
     Indication: RECTAL CANCER
     Dosage: 163 MG OTHER INTRAVENOUS NOS
     Route: 042
     Dates: start: 20041012, end: 20041012
  3. FLUOROURACIL [Concomitant]
  4. LEUCOVORIN [Concomitant]
  5. BEVACIZUMAB [Concomitant]
  6. PRE-MEDICATION NOS [Concomitant]

REACTIONS (8)
  - ASTHENIA [None]
  - BLOOD PRESSURE INCREASED [None]
  - COLD SWEAT [None]
  - CONVULSION [None]
  - DYSPNOEA [None]
  - FEELING HOT [None]
  - RESPIRATORY DISTRESS [None]
  - RESPIRATORY RATE INCREASED [None]
